FAERS Safety Report 4437586-7 (Version None)
Quarter: 2004Q3

REPORT INFORMATION
  Report Type: 
  Country: None (occurrence: None)
  Receive Date: 20040827
  Receipt Date: 20040817
  Transmission Date: 20050211
  Serious: Yes (Life-Threatening, Hospitalization)
  Sender: FDA-Public Use
  Company Number: 2004221936DE

PATIENT
  Age: 51 Year
  Sex: Male
  Weight: 58 kg

DRUGS (7)
  1. BEXTRA [Suspect]
     Indication: BURSITIS
     Dosage: 20 MG, QD, ORAL
     Route: 048
     Dates: start: 20040517, end: 20040520
  2. PANTOZOL (PANTOPRAZOLE SODIUM) [Concomitant]
  3. LUDIOMIL [Concomitant]
  4. MORPHINE SULFATE [Concomitant]
  5. ISOPTIN RR (VERAPAMIL HYDROCHLORIDE) [Concomitant]
  6. INSULIN RAPID (INSULIN HUMAN SEMISYNTHETIC) [Concomitant]
  7. MORPHINE [Concomitant]

REACTIONS (16)
  - BLOOD GLUCOSE INCREASED [None]
  - BLOOD POTASSIUM INCREASED [None]
  - DUODENAL SCARRING [None]
  - GASTRITIS EROSIVE [None]
  - GASTROINTESTINAL DISORDER [None]
  - HIATUS HERNIA [None]
  - HICCUPS [None]
  - HYPOGLYCAEMIA [None]
  - IRON DEFICIENCY [None]
  - KETOACIDOSIS [None]
  - MARKEDLY REDUCED DIETARY INTAKE [None]
  - METABOLIC ACIDOSIS [None]
  - PEPTIC ULCER [None]
  - REFLUX OESOPHAGITIS [None]
  - RENAL FAILURE ACUTE [None]
  - TREATMENT NONCOMPLIANCE [None]
